FAERS Safety Report 11438956 (Version 2)
Quarter: 2015Q3

REPORT INFORMATION
  Report Type: Spontaneous
  Country: JP (occurrence: JP)
  Receive Date: 20150901
  Receipt Date: 20150929
  Transmission Date: 20151125
  Serious: Yes (Other)
  Sender: FDA-Public Use
  Company Number: JP-BRISTOL-MYERS SQUIBB COMPANY-BMS-2015-056994

PATIENT
  Age: 77 Year
  Sex: Male

DRUGS (1)
  1. ERBITUX [Suspect]
     Active Substance: CETUXIMAB
     Indication: SQUAMOUS CELL CARCINOMA OF HEAD AND NECK
     Dosage: UNK
     Route: 041
     Dates: start: 20150302, end: 20150427

REACTIONS (24)
  - Mucosal infection [Recovered/Resolved]
  - Pyrexia [Unknown]
  - Nausea [Unknown]
  - Dermatitis acneiform [Recovered/Resolved]
  - Dry mouth [Not Recovered/Not Resolved]
  - Dysphagia [Not Recovered/Not Resolved]
  - Anaemia [Not Recovered/Not Resolved]
  - Alanine aminotransferase increased [Recovering/Resolving]
  - Blood alkaline phosphatase increased [Recovered/Resolved]
  - Pharyngeal inflammation [Not Recovered/Not Resolved]
  - Dry skin [Not Recovered/Not Resolved]
  - Radiation skin injury [Not Recovered/Not Resolved]
  - Aspartate aminotransferase increased [Recovering/Resolving]
  - Hypomagnesaemia [Recovered/Resolved]
  - Weight decreased [Unknown]
  - Hyperkalaemia [Recovered/Resolved]
  - Hypochloraemia [Not Recovered/Not Resolved]
  - Hyponatraemia [Not Recovered/Not Resolved]
  - White blood cell count decreased [Recovered/Resolved]
  - Decreased appetite [Unknown]
  - Stomatitis [Not Recovered/Not Resolved]
  - Blood lactate dehydrogenase increased [Recovered/Resolved]
  - Paronychia [Recovered/Resolved]
  - Hypocalcaemia [Recovered/Resolved]

NARRATIVE: CASE EVENT DATE: 20150308
